FAERS Safety Report 7400429-3 (Version None)
Quarter: 2011Q2

REPORT INFORMATION
  Report Type: 
  Country: None (occurrence: None)
  Receive Date: 20110407
  Receipt Date: 20110329
  Transmission Date: 20111010
  Serious: Yes (Hospitalization)
  Sender: FDA-Public Use
  Company Number: LV-ASTRAZENECA-2011SE17793

PATIENT
  Age: 6871 Day
  Sex: Female
  Weight: 59 kg

DRUGS (1)
  1. NEXIUM [Suspect]
     Indication: GASTROOESOPHAGEAL REFLUX DISEASE
     Route: 048
     Dates: start: 20110322, end: 20110325

REACTIONS (2)
  - DRUG HYPERSENSITIVITY [None]
  - RASH [None]
